FAERS Safety Report 4996602-4 (Version None)
Quarter: 2006Q2

REPORT INFORMATION
  Report Type: 
  Country: None (occurrence: None)
  Receive Date: 20060505
  Receipt Date: 20060426
  Transmission Date: 20061013
  Serious: Yes (Hospitalization, Other)
  Sender: FDA-Public Use
  Company Number: 2006056150

PATIENT
  Age: 44 Year
  Sex: Male
  Weight: 65.7716 kg

DRUGS (3)
  1. DILANTIN KAPSEAL [Suspect]
     Indication: EPILEPSY
     Dosage: 500 MG (1 D),  ORAL
     Route: 048
  2. PHENYTOIN SODIUM [Suspect]
     Indication: EPILEPSY
     Dosage: 400 MG (1 D), ORAL
     Route: 048
  3. XANAX [Concomitant]

REACTIONS (10)
  - ANTICONVULSANT DRUG LEVEL DECREASED [None]
  - ANTICONVULSANT DRUG LEVEL INCREASED [None]
  - CONVULSION [None]
  - DIFFICULTY IN WALKING [None]
  - DIZZINESS [None]
  - DRUG LEVEL CHANGED [None]
  - FALL [None]
  - THERAPEUTIC RESPONSE UNEXPECTED WITH DRUG SUBSTITUTION [None]
  - TREMOR [None]
  - VIRAL INFECTION [None]
